FAERS Safety Report 19983353 (Version 1)
Quarter: 2021Q4

REPORT INFORMATION
  Report Type: Report from Study
  Country: IT (occurrence: IT)
  Receive Date: 20211021
  Receipt Date: 20211021
  Transmission Date: 20220303
  Serious: Yes (Hospitalization)
  Sender: FDA-Public Use
  Company Number: None

PATIENT
  Age: 77 Year
  Sex: Male

DRUGS (2)
  1. MIRTAZAPINE [Suspect]
     Active Substance: MIRTAZAPINE
     Indication: Substance abuse
     Dosage: UNIT DOSE: 7 DF
     Route: 048
     Dates: start: 20210728, end: 20210728
  2. CITALOPRAM [Concomitant]
     Active Substance: CITALOPRAM HYDROBROMIDE
     Indication: Depression
     Dosage: UNIT DOSE: 20 MG
     Route: 048
     Dates: start: 20210714, end: 20210728

REACTIONS (3)
  - Bradycardia [Unknown]
  - Psychomotor skills impaired [Unknown]
  - Substance abuse [Unknown]

NARRATIVE: CASE EVENT DATE: 20210728
